FAERS Safety Report 4838956-5 (Version None)
Quarter: 2005Q4

REPORT INFORMATION
  Report Type: 
  Country: None (occurrence: None)
  Receive Date: 20051123
  Receipt Date: 20051123
  Transmission Date: 20060501
  Serious: Yes (Other)
  Sender: FDA-Public Use
  Company Number: None

PATIENT
  Age: 84 Year
  Sex: Female
  Weight: 66 kg

DRUGS (1)
  1. SODIUM FERRIC GLUCONATE COMPLEX  50MG [Suspect]
     Indication: ANAEMIA
     Dosage: 50MG  ONCE  IV
     Route: 042
     Dates: start: 20040816, end: 20040816

REACTIONS (3)
  - HEADACHE [None]
  - PHARYNGOLARYNGEAL PAIN [None]
  - THROAT TIGHTNESS [None]
